FAERS Safety Report 21623027 (Version 4)
Quarter: 2022Q4

REPORT INFORMATION
  Report Type: Spontaneous
  Country: US (occurrence: NG)
  Receive Date: 20221121
  Receipt Date: 20221223
  Transmission Date: 20230113
  Serious: Yes (Hospitalization, Other)
  Sender: FDA-Public Use
  Company Number: US-009507513-2211USA005886

PATIENT
  Sex: Male

DRUGS (1)
  1. ZERBAXA [Suspect]
     Active Substance: CEFTOLOZANE SULFATE\TAZOBACTAM SODIUM
     Indication: Pseudomonas infection
     Dosage: UNK
     Dates: start: 202210

REACTIONS (4)
  - Drug ineffective [Unknown]
  - Terminal state [Unknown]
  - Weight decreased [Unknown]
  - Surgery [Unknown]

NARRATIVE: CASE EVENT DATE: 20220101
